FAERS Safety Report 4376376-0 (Version None)
Quarter: 2004Q2

REPORT INFORMATION
  Report Type: 
  Country: None (occurrence: None)
  Receive Date: 20040610
  Receipt Date: 20040610
  Transmission Date: 20050107
  Serious: Yes (Hospitalization)
  Sender: FDA-Public Use
  Company Number: None

PATIENT
  Age: 71 Year
  Sex: Male
  Weight: 96.6 kg

DRUGS (6)
  1. PACLITAXEL [Suspect]
     Indication: BLADDER CANCER
     Dosage: 200 MG/M2 D1, IV
     Route: 042
     Dates: start: 20040315
  2. CARBOPLATIN [Suspect]
     Indication: BLADDER CANCER
     Dosage: 615 MG, D1, IV
     Route: 042
     Dates: start: 20040519
  3. GEMCITABINE [Suspect]
     Indication: BLADDER CANCER
     Dosage: 801 MG/M2 D1,8 IV
     Route: 042
     Dates: start: 20040519
  4. GEMCITABINE [Suspect]
     Indication: BLADDER CANCER
     Dosage: 801 MG/M2 D1,8 IV
     Route: 042
     Dates: start: 20040525
  5. LEVAQUIN [Concomitant]
  6. LIPITOR [Concomitant]

REACTIONS (1)
  - DIVERTICULITIS [None]
